FAERS Safety Report 9704029 (Version 1)
Quarter: 2013Q4

REPORT INFORMATION
  Report Type: Spontaneous
  Country: US (occurrence: US)
  Receive Date: 20131122
  Receipt Date: 20131122
  Transmission Date: 20140711
  Serious: No
  Sender: FDA-Public Use
  Company Number: US-BRISTOL-MYERS SQUIBB COMPANY-19248871

PATIENT
  Age: 73 Year
  Sex: Male
  Weight: 108.39 kg

DRUGS (6)
  1. GLUCOPHAGE XR TABS 500 MG [Suspect]
     Indication: TYPE 2 DIABETES MELLITUS
  2. METFORMIN HCL [Suspect]
  3. ATENOLOL [Concomitant]
  4. ALLOPURINOL [Concomitant]
  5. RANITIDINE [Concomitant]
  6. HYDROCHLOROTHIAZIDE [Concomitant]

REACTIONS (3)
  - Blood glucose abnormal [Unknown]
  - Medication residue present [Unknown]
  - Diarrhoea [Unknown]
